FAERS Safety Report 6622131-8 (Version None)
Quarter: 2010Q1

REPORT INFORMATION
  Report Type: 
  Country: None (occurrence: None)
  Receive Date: 20100223
  Receipt Date: 20091028
  Transmission Date: 20100710
  Serious: No
  Sender: FDA-Public Use
  Company Number: 8053862

PATIENT
  Sex: Male

DRUGS (1)
  1. CERTOLIZUIMAB PEGOL (UCB, INC) [Suspect]
     Indication: CROHN'S DISEASE
     Dosage: 400 MG, ONCE MONTHLY SUBCUTANEOUS
     Route: 058
     Dates: start: 20090729

REACTIONS (8)
  - ABDOMINAL DISTENSION [None]
  - ABDOMINAL PAIN [None]
  - DIZZINESS [None]
  - DRUG INEFFECTIVE [None]
  - HAEMATOCHEZIA [None]
  - NAUSEA [None]
  - OEDEMA PERIPHERAL [None]
  - VOMITING [None]
